FAERS Safety Report 10993280 (Version 2)
Quarter: 2015Q2

REPORT INFORMATION
  Report Type: Report from Study
  Country: FR (occurrence: FR)
  Receive Date: 20150407
  Receipt Date: 20150422
  Transmission Date: 20150821
  Serious: Yes (Disabling, Other)
  Sender: FDA-Public Use
  Company Number: FR-ROCHE-1561028

PATIENT
  Age: 79 Year
  Sex: Male

DRUGS (2)
  1. RANIBIZUMAB [Suspect]
     Active Substance: RANIBIZUMAB
     Indication: VISUAL IMPAIRMENT
     Dosage: MOST RECENT DOSE RECEIVED ON 27/AUG/2014
     Route: 050
     Dates: start: 20140625
  2. RANIBIZUMAB [Suspect]
     Active Substance: RANIBIZUMAB
     Indication: RETINAL VEIN OCCLUSION
     Dosage: MOST RECENT DOSE RECEIVED ON 27/AUG/2014
     Route: 050
     Dates: start: 20140725

REACTIONS (3)
  - Macular ischaemia [Recovered/Resolved with Sequelae]
  - Macular oedema [Unknown]
  - Peripheral ischaemia [Unknown]

NARRATIVE: CASE EVENT DATE: 20141028
